FAERS Safety Report 25965770 (Version 1)
Quarter: 2025Q4

REPORT INFORMATION
  Report Type: Report from Study
  Country: US (occurrence: US)
  Receive Date: 20251027
  Receipt Date: 20251027
  Transmission Date: 20260118
  Serious: Yes (Other)
  Sender: ABBVIE
  Company Number: US-ABBVIE-6516028

PATIENT
  Age: 38 Year
  Sex: Female

DRUGS (2)
  1. SKYRIZI [Suspect]
     Active Substance: RISANKIZUMAB-RZAA
     Indication: Psoriasis
     Dosage: FORM STRENGTH 150MG/ML?WEEK 0
     Route: 058
     Dates: start: 20250908, end: 20250908
  2. SKYRIZI [Suspect]
     Active Substance: RISANKIZUMAB-RZAA
     Dosage: FORM STRENGTH 150MG/ML?WEEK 4
     Route: 058
     Dates: start: 20251006

REACTIONS (2)
  - Fibula fracture [Unknown]
  - Accident [Unknown]

NARRATIVE: CASE EVENT DATE: 20251017
